APPROVED DRUG PRODUCT: IMODIUM A-D EZ CHEWS
Active Ingredient: LOPERAMIDE HYDROCHLORIDE
Strength: 2MG
Dosage Form/Route: TABLET, CHEWABLE;ORAL
Application: N020448 | Product #001
Applicant: JOHNSON AND JOHNSON CONSUMER INC MCNEIL CONSUMER HEALTHCARE DIV
Approved: Jul 24, 1997 | RLD: Yes | RS: No | Type: DISCN